FAERS Safety Report 9158833 (Version 1)
Quarter: 2013Q1

REPORT INFORMATION
  Report Type: Spontaneous
  Country: US (occurrence: US)
  Receive Date: 20130313
  Receipt Date: 20130313
  Transmission Date: 20140127
  Serious: Yes (Other)
  Sender: FDA-Public Use
  Company Number: US-AMGEN-USASP2013009668

PATIENT
  Age: 40 Year
  Sex: Female
  Weight: 63.49 kg

DRUGS (8)
  1. ENBREL [Suspect]
     Indication: RHEUMATOID ARTHRITIS
     Dosage: 50 MG, QWK
     Route: 058
  2. MEDROL                             /00049601/ [Concomitant]
     Dosage: 16 MG, UNK
  3. GLUCOSAMINE [Concomitant]
     Dosage: 1500 COM, UNK
  4. VITAMIN E                          /00110501/ [Concomitant]
     Dosage: CHW, 400 UNIT, UNK
  5. TYLENOL /00020001/ [Concomitant]
     Dosage: 500 MG, UNK
  6. SULFASALAZINE [Concomitant]
     Dosage: 500 MG, UNK
  7. PRENATAL                           /00231801/ [Concomitant]
     Dosage: 1 UNK, UNK
  8. MEDROL                             /00049601/ [Concomitant]
     Dosage: 2 MG, UNK

REACTIONS (4)
  - Arnold-Chiari malformation [Unknown]
  - Cystitis [Unknown]
  - Migraine [Unknown]
  - Urinary tract infection [Unknown]
